FAERS Safety Report 4440707-3 (Version None)
Quarter: 2004Q3

REPORT INFORMATION
  Report Type: 
  Country: None (occurrence: None)
  Receive Date: 20040728
  Receipt Date: 20040521
  Transmission Date: 20050211
  Serious: No
  Sender: FDA-Public Use
  Company Number: USA040258957

PATIENT
  Age: 16 Year
  Sex: Male
  Weight: 73 kg

DRUGS (5)
  1. STRATTERA [Suspect]
     Indication: ATTENTION DEFICIT/HYPERACTIVITY DISORDER
     Dosage: 40 MG/DAY
     Dates: start: 20030201, end: 20040205
  2. MULTI-VITAMIN [Concomitant]
  3. GINSENG [Concomitant]
  4. GINKGO BILOBA [Concomitant]
  5. AMINO ACIDS [Concomitant]

REACTIONS (7)
  - CONSTIPATION [None]
  - DECREASED APPETITE [None]
  - DISTURBANCE IN ATTENTION [None]
  - ERECTILE DYSFUNCTION [None]
  - FATIGUE [None]
  - SOMNOLENCE [None]
  - WEIGHT DECREASED [None]
